FAERS Safety Report 15184553 (Version 2)
Quarter: 2018Q4

REPORT INFORMATION
  Report Type: Report from Study
  Country: US (occurrence: US)
  Receive Date: 20180723
  Receipt Date: 20181018
  Transmission Date: 20190204
  Serious: No
  Sender: FDA-Public Use
  Company Number: US-AMGEN-USASP2018084043

PATIENT
  Age: 74 Year
  Sex: Female

DRUGS (10)
  1. MELATONIN [Concomitant]
     Active Substance: MELATONIN
     Dosage: UNK
  2. ALLOPURINOL. [Concomitant]
     Active Substance: ALLOPURINOL
     Dosage: UNK
  3. PANTOPRAZOLE [Concomitant]
     Active Substance: PANTOPRAZOLE
     Dosage: UNK
  4. REPATHA [Suspect]
     Active Substance: EVOLOCUMAB
     Indication: HYPERLIPIDAEMIA
     Dosage: 140 MG/ML, Q2WK
     Route: 058
     Dates: start: 20180518
  5. NIFEDIPINE. [Concomitant]
     Active Substance: NIFEDIPINE
     Dosage: UNK
  6. DYAZIDE [Concomitant]
     Active Substance: HYDROCHLOROTHIAZIDE\TRIAMTERENE
     Dosage: UNK
  7. FUROSEMIDE. [Concomitant]
     Active Substance: FUROSEMIDE
     Dosage: UNK
  8. REPATHA [Suspect]
     Active Substance: EVOLOCUMAB
     Indication: LYMPHOEDEMA
  9. REPATHA [Suspect]
     Active Substance: EVOLOCUMAB
     Indication: HYPERCHOLESTEROLAEMIA
  10. SODIUM [Concomitant]
     Active Substance: SODIUM
     Dosage: UNK

REACTIONS (8)
  - Fall [Unknown]
  - Palpitations [Unknown]
  - Decreased appetite [Unknown]
  - Abdominal hernia [Unknown]
  - Myalgia [Unknown]
  - Rhinorrhoea [Unknown]
  - Skin discolouration [Unknown]
  - Blood creatine phosphokinase increased [Not Recovered/Not Resolved]

NARRATIVE: CASE EVENT DATE: 2018
